FAERS Safety Report 22189269 (Version 1)
Quarter: 2023Q2

REPORT INFORMATION
  Report Type: Report from Study
  Country: US (occurrence: US)
  Receive Date: 20230410
  Receipt Date: 20230410
  Transmission Date: 20230722
  Serious: No
  Sender: FDA-Public Use
  Company Number: US-ETON PHARMACEUTICALS, INC-2023ETO000073

PATIENT

DRUGS (1)
  1. ALKINDI SPRINKLE [Suspect]
     Active Substance: HYDROCORTISONE
     Indication: Adrenocortical insufficiency acute
     Dosage: 3 MILLIGRAM, TID
     Route: 048
     Dates: start: 20230314

REACTIONS (7)
  - Incorrect dose administered [Unknown]
  - Wrong technique in product usage process [Unknown]
  - Irritability [Unknown]
  - Feeling abnormal [Unknown]
  - Stubbornness [Unknown]
  - Decreased appetite [Unknown]
  - Drug ineffective [Unknown]

NARRATIVE: CASE EVENT DATE: 20230301
